FAERS Safety Report 12217235 (Version 1)
Quarter: 2016Q1

REPORT INFORMATION
  Report Type: Spontaneous
  Country: IT (occurrence: IT)
  Receive Date: 20160329
  Receipt Date: 20160329
  Transmission Date: 20160526
  Serious: Yes (Other)
  Sender: FDA-Public Use
  Company Number: IT-PFIZER INC-2016163613

PATIENT
  Age: 57 Year
  Sex: Female

DRUGS (3)
  1. TAVOR (LORAZEPAM) [Suspect]
     Active Substance: LORAZEPAM
  2. SEROQUEL [Concomitant]
     Active Substance: QUETIAPINE FUMARATE
  3. ELOPRAM /00582602/ [Interacting]
     Active Substance: CITALOPRAM HYDROBROMIDE
     Indication: DEPRESSION
     Dosage: 12 GTT, DAILY
     Route: 048
     Dates: start: 1995

REACTIONS (9)
  - Hyperhidrosis [Recovered/Resolved]
  - Pruritus [Recovered/Resolved]
  - Dyssomnia [Recovered/Resolved]
  - Accidental overdose [Recovered/Resolved]
  - Feeling abnormal [Recovered/Resolved]
  - Hypokalaemia [Unknown]
  - Palpitations [Recovered/Resolved]
  - Drug interaction [Recovered/Resolved]
  - Overdose [Not Recovered/Not Resolved]

NARRATIVE: CASE EVENT DATE: 1995
